FAERS Safety Report 9296852 (Version 4)
Quarter: 2013Q3

REPORT INFORMATION
  Report Type: Spontaneous
  Country: US (occurrence: US)
  Receive Date: 20130517
  Receipt Date: 20130725
  Transmission Date: 20140515
  Serious: Yes (Other)
  Sender: FDA-Public Use
  Company Number: US-PFIZER INC-2013122824

PATIENT
  Age: 58 Year
  Sex: Male
  Weight: 88.44 kg

DRUGS (3)
  1. LIPITOR [Suspect]
     Indication: BLOOD CHOLESTEROL INCREASED
     Dosage: UNK
     Dates: start: 2006, end: 2006
  2. LYRICA [Suspect]
     Indication: MUSCLE SPASMS
     Dosage: 150 MG, 3X/DAY, 1 CAPSULE IN THE MORNING, 2 CAPSULES AT NIGHT
     Route: 048
     Dates: start: 2010
  3. LYRICA [Suspect]
     Indication: NEUROPATHY PERIPHERAL

REACTIONS (4)
  - Neuropathy peripheral [Unknown]
  - Off label use [Unknown]
  - Muscle spasms [Unknown]
  - Memory impairment [Unknown]
